FAERS Safety Report 5670947-7 (Version None)
Quarter: 2008Q1

REPORT INFORMATION
  Report Type: 
  Country: None (occurrence: None)
  Receive Date: 20080313
  Receipt Date: 20080303
  Transmission Date: 20080703
  Serious: Yes (Other)
  Sender: FDA-Public Use
  Company Number: SPV1-2008-00456

PATIENT
  Sex: Male

DRUGS (1)
  1. ADDERALL XR 30 [Suspect]
     Dosage: ORAL, 100 MG (^5 20MG CAPSULES DAILY), ORAL
     Route: 048
     Dates: start: 20060101, end: 20070101

REACTIONS (5)
  - DEPRESSION [None]
  - DRUG DEPENDENCE [None]
  - DRUG WITHDRAWAL SYNDROME [None]
  - OVERDOSE [None]
  - STARING [None]
